FAERS Safety Report 5277366-6 (Version None)
Quarter: 2007Q1

REPORT INFORMATION
  Report Type: 
  Country: None (occurrence: None)
  Receive Date: 20061213
  Receipt Date: 20040811
  Transmission Date: 20070707
  Serious: No
  Sender: FDA-Public Use
  Company Number: 2004UW14184

PATIENT
  Age: 61 Year
  Sex: Female

DRUGS (20)
  1. SEROQUEL [Suspect]
     Indication: SCHIZOPHRENIA
     Dosage: 150 MG QD PO
     Route: 048
     Dates: start: 20010101, end: 20010301
  2. SEROQUEL [Suspect]
     Indication: SCHIZOPHRENIA
     Dosage: 600 MG QD PO
     Route: 048
     Dates: start: 20010301
  3. HALDOL [Suspect]
     Indication: SCHIZOPHRENIA
     Dosage: 4 MG HS
     Dates: start: 20020301
  4. ASTHMA INHALERS [Suspect]
  5. TOPAMAX [Concomitant]
  6. DEPAKOTE [Concomitant]
  7. ARTANE [Concomitant]
  8. COGENTIN [Concomitant]
  9. GLUCOVANCE [Concomitant]
  10. LIPITOR [Concomitant]
  11. CELEBREX [Concomitant]
  12. XENICAL [Concomitant]
  13. LASIX [Concomitant]
  14. GEN-VERAPAMIL - SLOW RELEASE [Concomitant]
  15. LISINOPRIL [Concomitant]
  16. PRILOSEC [Concomitant]
  17. THEO-DUR [Concomitant]
  18. ZYRTEC [Concomitant]
  19. PREVACID [Concomitant]
  20. NO MATCH [Concomitant]

REACTIONS (1)
  - CATARACT [None]
